FAERS Safety Report 18992416 (Version 1)
Quarter: 2021Q1

REPORT INFORMATION
  Report Type: Spontaneous
  Country: US (occurrence: US)
  Receive Date: 20210310
  Receipt Date: 20210310
  Transmission Date: 20210420
  Serious: Yes (Hospitalization)
  Sender: FDA-Public Use
  Company Number: None

PATIENT
  Age: 59 Year
  Sex: Female
  Weight: 108.9 kg

DRUGS (1)
  1. BAMLANIVIMAB. [Suspect]
     Active Substance: BAMLANIVIMAB
     Indication: COVID-19
     Route: 042
     Dates: start: 20210307

REACTIONS (7)
  - Hyponatraemia [None]
  - Diabetes mellitus inadequate control [None]
  - Metabolic acidosis [None]
  - Pyrexia [None]
  - Blood bicarbonate decreased [None]
  - Oxygen saturation decreased [None]
  - Blood ketone body increased [None]

NARRATIVE: CASE EVENT DATE: 20210308
